FAERS Safety Report 5858621-5 (Version None)
Quarter: 2008Q3

REPORT INFORMATION
  Report Type: 
  Country: None (occurrence: None)
  Receive Date: 20080826
  Receipt Date: 20080814
  Transmission Date: 20090109
  Serious: Yes (Other)
  Sender: FDA-Public Use
  Company Number: US-PFIZER INC-2008068773

PATIENT
  Sex: Female

DRUGS (7)
  1. ZITHROMAX [Suspect]
     Indication: BRONCHITIS
  2. ZITHROMAX [Interacting]
     Indication: RESPIRATORY TRACT INFECTION
  3. LYRICA [Interacting]
     Indication: FIBROMYALGIA
  4. AMITRIPTYLINE HCL [Interacting]
  5. CYMBALTA [Concomitant]
  6. ULTRACET [Concomitant]
  7. TYLENOL (CAPLET) [Concomitant]

REACTIONS (3)
  - DRUG INTERACTION [None]
  - MOVEMENT DISORDER [None]
  - MUSCLE DISORDER [None]
